FAERS Safety Report 17532432 (Version 2)
Quarter: 2020Q2

REPORT INFORMATION
  Report Type: Spontaneous
  Country: DE (occurrence: DE)
  Receive Date: 20200312
  Receipt Date: 20200402
  Transmission Date: 20200713
  Serious: Yes (Other)
  Sender: FDA-Public Use
  Company Number: DE-TEVA-2020-DE-1196473

PATIENT
  Age: 64 Year
  Sex: Female

DRUGS (3)
  1. ESTREVA 0,1 % GEL [Suspect]
     Active Substance: ESTRADIOL
     Indication: MENOPAUSAL SYMPTOMS
     Dosage: SINCE 10 YEARS SOMETIMES REGULARLY OR SOMETIMES IN LARGER INTERVALS
     Route: 061
     Dates: start: 201505, end: 201906
  2. PROGESTERON GEL [Concomitant]
  3. ESTREVA 0,1 % GEL [Suspect]
     Active Substance: ESTRADIOL
     Indication: OSTEOPOROSIS

REACTIONS (2)
  - Condition aggravated [Not Recovered/Not Resolved]
  - Neoplasm progression [Not Recovered/Not Resolved]

NARRATIVE: CASE EVENT DATE: 2018
